FAERS Safety Report 21440270 (Version 1)
Quarter: 2022Q4

REPORT INFORMATION
  Report Type: Spontaneous
  Country: US (occurrence: US)
  Receive Date: 20221011
  Receipt Date: 20221011
  Transmission Date: 20230113
  Serious: No
  Sender: FDA-Public Use
  Company Number: US-AMNEAL PHARMACEUTICALS-2021-AMRX-05333

PATIENT
  Age: 23 Year
  Sex: Male

DRUGS (2)
  1. LIORESAL [Suspect]
     Active Substance: BACLOFEN
     Indication: Cerebral palsy
     Dosage: UNK ?G, \DAY
     Route: 037
     Dates: start: 20200921
  2. LIORESAL [Suspect]
     Active Substance: BACLOFEN
     Indication: Muscle spasticity

REACTIONS (4)
  - Drug withdrawal syndrome [Recovered/Resolved]
  - Overdose [Recovered/Resolved]
  - Dizziness [Recovered/Resolved]
  - Nausea [Recovered/Resolved]

NARRATIVE: CASE EVENT DATE: 20200921
